FAERS Safety Report 22246118 (Version 9)
Quarter: 2024Q4

REPORT INFORMATION
  Report Type: Spontaneous
  Country: US (occurrence: US)
  Receive Date: 20230424
  Receipt Date: 20241118
  Transmission Date: 20250115
  Serious: Yes (Hospitalization)
  Sender: PFIZER
  Company Number: US-PFIZER INC-PV202300070959

PATIENT
  Age: 62 Year
  Sex: Male
  Weight: 131.1 kg

DRUGS (1)
  1. BOSULIF [Suspect]
     Active Substance: BOSUTINIB MONOHYDRATE
     Indication: Chronic myeloid leukaemia
     Dosage: 400 MG, DAILY (TAKE 400 MG PO(PER ORAL) ONCE DAILY)
     Route: 048

REACTIONS (1)
  - Leukaemoid reaction [Unknown]
